FAERS Safety Report 22259739 (Version 1)
Quarter: 2023Q2

REPORT INFORMATION
  Report Type: Report from Study
  Country: FR (occurrence: FR)
  Receive Date: 20230427
  Receipt Date: 20230427
  Transmission Date: 20230722
  Serious: Yes (Other)
  Sender: FDA-Public Use
  Company Number: FR-MYLANLABS-2023M1044609

PATIENT
  Age: 13 Year
  Sex: Male

DRUGS (8)
  1. METHOTREXATE [Suspect]
     Active Substance: METHOTREXATE
     Indication: CBL gene mutation
     Dosage: UNK
     Route: 065
  2. METHOTREXATE [Suspect]
     Active Substance: METHOTREXATE
     Indication: Immunosuppressant drug therapy
  3. METHOTREXATE [Suspect]
     Active Substance: METHOTREXATE
     Indication: Visual field defect
  4. AZATHIOPRINE [Suspect]
     Active Substance: AZATHIOPRINE
     Indication: CBL gene mutation
     Dosage: UNK
     Route: 065
  5. AZATHIOPRINE [Suspect]
     Active Substance: AZATHIOPRINE
     Indication: Immunosuppressant drug therapy
  6. AZATHIOPRINE [Suspect]
     Active Substance: AZATHIOPRINE
     Indication: Visual field defect
  7. INTERFERON ALFA NOS [Suspect]
     Active Substance: INTERFERON ALFA-2A OR INTERFERON ALFA-2B
     Indication: CBL gene mutation
     Dosage: UNK
     Route: 065
  8. SIROLIMUS [Suspect]
     Active Substance: SIROLIMUS
     Indication: CBL gene mutation
     Dosage: UNK
     Route: 065

REACTIONS (1)
  - Drug ineffective [Unknown]
